FAERS Safety Report 22078880 (Version 1)
Quarter: 2023Q1

REPORT INFORMATION
  Report Type: Spontaneous
  Country: None (occurrence: US)
  Receive Date: 20230309
  Receipt Date: 20230309
  Transmission Date: 20230418
  Serious: Yes (Hospitalization)
  Sender: FDA-Public Use
  Company Number: US-ACIC Fine Chemicals Inc-2138876

PATIENT
  Age: 53 Year
  Sex: Male

DRUGS (2)
  1. VERAPAMIL HYDROCHLORIDE [Suspect]
     Active Substance: VERAPAMIL HYDROCHLORIDE
     Indication: Cerebral vasoconstriction
     Route: 013
  2. MILRINONE LACTATE [Concomitant]
     Active Substance: MILRINONE LACTATE
     Route: 042

REACTIONS (2)
  - Vasospasm [Recovering/Resolving]
  - Off label use [Unknown]
